FAERS Safety Report 24620611 (Version 1)
Quarter: 2024Q4

REPORT INFORMATION
  Report Type: Spontaneous
  Country: CH (occurrence: CH)
  Receive Date: 20241114
  Receipt Date: 20241114
  Transmission Date: 20250114
  Serious: Yes (Hospitalization)
  Sender: MYLAN
  Company Number: None

PATIENT
  Age: 58 Year
  Sex: Female

DRUGS (3)
  1. VENLAFAXINE HYDROCHLORIDE [Suspect]
     Active Substance: VENLAFAXINE HYDROCHLORIDE
     Indication: Depression
     Dosage: 75 MILLIGRAM, QD (75MG 1-0-0, ADMINISTERED FOR APPROX.15 YEARS)
     Route: 048
  2. RAMIPRIL HCT MEPHA [Concomitant]
     Indication: Hypertension
     Dosage: 1 DOSAGE FORM, QD (5125MG 0-0-1, ADMINISTERED FOR APPROX. 2 YEARS)
     Route: 048
  3. KEYTRUDA [Concomitant]
     Active Substance: PEMBROLIZUMAB
     Indication: Acral lentiginous melanoma
     Dosage: 200 MILLIGRAM, 3XW (START DATE: 03-APR-2024)
     Route: 042

REACTIONS (1)
  - Hypersensitivity pneumonitis [Not Recovered/Not Resolved]

NARRATIVE: CASE EVENT DATE: 20240101
